FAERS Safety Report 14646415 (Version 2)
Quarter: 2018Q1

REPORT INFORMATION
  Report Type: Spontaneous
  Country: LB (occurrence: LB)
  Receive Date: 20180316
  Receipt Date: 20180330
  Transmission Date: 20180509
  Serious: Yes (Hospitalization)
  Sender: FDA-Public Use
  Company Number: LB-CONCORDIA PHARMACEUTICALS INC.-GSH201803-000957

PATIENT
  Age: 58 Year
  Sex: Male

DRUGS (9)
  1. BURINEX [Concomitant]
     Active Substance: BUMETANIDE
     Indication: OEDEMA
  2. VITAMIN K2 [Concomitant]
     Active Substance: MENAQUINONE 6
  3. POLYSTYRENE SULFONATE [Suspect]
     Active Substance: POLYSTYRENE SULFONIC ACID
     Indication: HYPERKALAEMIA
     Route: 048
     Dates: start: 20180217, end: 20180218
  4. CYNT [Concomitant]
     Indication: HYPERTENSION
  5. CALTRATE [Concomitant]
     Active Substance: CALCIUM CARBONATE
     Indication: HYPERTENSION
  6. NEBILET [Concomitant]
     Active Substance: NEBIVOLOL
     Indication: HYPERTENSION
  7. EURO-D [Concomitant]
     Indication: OEDEMA
  8. MICARDIS [Concomitant]
     Active Substance: TELMISARTAN
     Indication: HYPERTENSION
  9. COVERSYL [Concomitant]
     Active Substance: PERINDOPRIL
     Indication: HYPERTENSION

REACTIONS (4)
  - Abdominal discomfort [Recovered/Resolved]
  - Pancreatitis [Recovered/Resolved]
  - Abdominal pain upper [Recovered/Resolved]
  - Vomiting [Recovered/Resolved]

NARRATIVE: CASE EVENT DATE: 20180217
